FAERS Safety Report 15658858 (Version 2)
Quarter: 2019Q1

REPORT INFORMATION
  Report Type: Report from Study
  Country: US (occurrence: US)
  Receive Date: 20181126
  Receipt Date: 20190201
  Transmission Date: 20190417
  Serious: Yes (Other)
  Sender: FDA-Public Use
  Company Number: PHEH2018US049185

PATIENT
  Sex: Male

DRUGS (2)
  1. ENTRESTO [Suspect]
     Active Substance: SACUBITRIL\VALSARTAN
     Indication: PRODUCT USED FOR UNKNOWN INDICATION
     Dosage: 50 MG, UNK (SACUBITRIL 24MG/ VALSARTAN 26MG)
     Route: 048
  2. ENTRESTO [Suspect]
     Active Substance: SACUBITRIL\VALSARTAN
     Dosage: 100 MG, UNK (SACUBITRIL 49MG/ VALSARTAN 51MG)
     Route: 048

REACTIONS (4)
  - Asthenia [Not Recovered/Not Resolved]
  - Gastrointestinal hypermotility [Unknown]
  - Atrial fibrillation [Unknown]
  - Fatigue [Not Recovered/Not Resolved]
